FAERS Safety Report 4750502-3 (Version None)
Quarter: 2005Q3

REPORT INFORMATION
  Report Type: 
  Country: None (occurrence: None)
  Receive Date: 20050823
  Receipt Date: 20050810
  Transmission Date: 20060218
  Serious: Yes (Other)
  Sender: FDA-Public Use
  Company Number: US-JNJFOC-20050803534

PATIENT
  Sex: Female

DRUGS (12)
  1. DURAGESIC-100 [Suspect]
     Route: 062
  2. VALIUM [Concomitant]
     Indication: DEPRESSION
     Route: 048
  3. LEXAPRO [Concomitant]
     Indication: DEPRESSION
     Route: 048
  4. WELLBUTRIN [Concomitant]
     Indication: DEPRESSION
     Route: 048
  5. OXYCONTIN [Concomitant]
     Indication: PAIN
     Route: 048
  6. LASIX [Concomitant]
     Indication: HYPERTENSION
     Route: 048
  7. POTASSIUM CHLORIDE [Concomitant]
     Indication: HYPERTENSION
     Route: 048
  8. LIDODERM PATCH [Concomitant]
     Indication: ARTHRITIS
     Route: 062
  9. PHENEGRAN [Concomitant]
     Indication: NAUSEA
     Dosage: AS NEEDED
     Route: 048
  10. PROTONIX [Concomitant]
     Route: 048
  11. TOPAMAX [Concomitant]
     Route: 048
  12. TRAMADOL HCL [Concomitant]
     Route: 048

REACTIONS (8)
  - ARTHRITIS [None]
  - DRUG EFFECT DECREASED [None]
  - GASTROOESOPHAGEAL REFLUX DISEASE [None]
  - HYPERTENSION [None]
  - INTRACRANIAL ANEURYSM [None]
  - MIGRAINE [None]
  - NAUSEA [None]
  - WHITE BLOOD CELL COUNT INCREASED [None]
